FAERS Safety Report 25393011 (Version 2)
Quarter: 2025Q2

REPORT INFORMATION
  Report Type: Report from Study
  Country: ZA (occurrence: ZA)
  Receive Date: 20250604
  Receipt Date: 20250623
  Transmission Date: 20250716
  Serious: Yes (Death, Hospitalization)
  Sender: ALEXION PHARMACEUTICALS
  Company Number: ZA-AstraZeneca-CH-00882142A

PATIENT
  Age: 83 Year

DRUGS (7)
  1. BUDESONIDE\FORMOTEROL [Suspect]
     Active Substance: BUDESONIDE\FORMOTEROL
     Indication: Asthma
  2. Gen payne [Concomitant]
     Route: 065
  3. ZOLPIDEM TARTRATE [Concomitant]
     Active Substance: ZOLPIDEM TARTRATE
     Indication: Insomnia
  4. TRAZODONE HYDROCHLORIDE [Concomitant]
     Active Substance: TRAZODONE HYDROCHLORIDE
     Indication: Depression
  5. DUTASTERIDE\TAMSULOSIN HYDROCHLORIDE [Concomitant]
     Active Substance: DUTASTERIDE\TAMSULOSIN HYDROCHLORIDE
     Indication: Prostatomegaly
  6. ATORVASTATIN [Concomitant]
     Active Substance: ATORVASTATIN
     Indication: Blood cholesterol
  7. AMLODIPINE BESYLATE [Concomitant]
     Active Substance: AMLODIPINE BESYLATE
     Indication: Hypertension

REACTIONS (1)
  - Gastrointestinal carcinoma [Fatal]
